FAERS Safety Report 5234665-1 (Version None)
Quarter: 2007Q1

REPORT INFORMATION
  Report Type: 
  Country: None (occurrence: None)
  Receive Date: 20070209
  Receipt Date: 20070201
  Transmission Date: 20070707
  Serious: Yes (Hospitalization)
  Sender: FDA-Public Use
  Company Number: GB-BAXTER-2007BH001624

PATIENT
  Age: 68 Year
  Sex: Male
  Weight: 100 kg

DRUGS (7)
  1. EXTRANEAL [Suspect]
     Indication: PERITONEAL DIALYSIS
     Route: 033
     Dates: start: 20061201
  2. LOSARTAN POSTASSIUM [Concomitant]
  3. ALLOPURINOL SODIUM [Concomitant]
  4. SIMVASTATIN [Concomitant]
  5. OMEPRAZOLE [Concomitant]
  6. CALCICHEW [Concomitant]
  7. INSULATARD [Concomitant]

REACTIONS (2)
  - PERITONITIS [None]
  - PYREXIA [None]
